FAERS Safety Report 6736581-2 (Version None)
Quarter: 2010Q2

REPORT INFORMATION
  Report Type: 
  Country: None (occurrence: None)
  Receive Date: 20100519
  Receipt Date: 20100505
  Transmission Date: 20101027
  Serious: Yes (Other)
  Sender: FDA-Public Use
  Company Number: 1000013846

PATIENT
  Age: 33 Year
  Sex: Female
  Weight: 74 kg

DRUGS (1)
  1. CITALOPRAM HYDROBROMIDE [Suspect]
     Indication: DEPRESSION
     Dosage: 20 MG 920 MG, 1 IN 1 D), ORAL
     Route: 048
     Dates: start: 20100121, end: 20100128

REACTIONS (8)
  - BURNING SENSATION [None]
  - DECREASED APPETITE [None]
  - DIZZINESS [None]
  - HEADACHE [None]
  - INSOMNIA [None]
  - NAUSEA [None]
  - PHOTOPHOBIA [None]
  - RESTLESSNESS [None]
